FAERS Safety Report 9124957 (Version 2)
Quarter: 2013Q2

REPORT INFORMATION
  Report Type: Spontaneous
  Country: US (occurrence: US)
  Receive Date: 20130121
  Receipt Date: 20130528
  Transmission Date: 20140414
  Serious: Yes (Hospitalization)
  Sender: FDA-Public Use
  Company Number: US-BAYER-2013-007584

PATIENT
  Age: 29 Year
  Sex: Female
  Weight: 54.42 kg

DRUGS (11)
  1. YASMIN [Suspect]
     Indication: ACNE
     Dosage: UNK
     Dates: start: 2011, end: 2012
  2. YASMIN [Suspect]
     Indication: PREMENSTRUAL DYSPHORIC DISORDER
  3. YASMIN [Suspect]
     Indication: PREMENSTRUAL SYNDROME
  4. OCELLA [Suspect]
     Indication: ACNE
     Dosage: UNK
     Dates: start: 2011, end: 2012
  5. OCELLA [Suspect]
     Indication: PREMENSTRUAL DYSPHORIC DISORDER
  6. OCELLA [Suspect]
     Indication: PREMENSTRUAL SYNDROME
  7. KEFLEX [Concomitant]
  8. MUCINEX DM [Concomitant]
  9. MULTIVITAMINS [Concomitant]
  10. NAPROXEN [Concomitant]
  11. ANTIBIOTICS [Concomitant]
     Route: 042

REACTIONS (5)
  - Deep vein thrombosis [None]
  - Injury [None]
  - Pain [None]
  - Pain [None]
  - Off label use [None]
